FAERS Safety Report 9579639 (Version 1)
Quarter: 2013Q4

REPORT INFORMATION
  Report Type: Spontaneous
  Country: US (occurrence: US)
  Receive Date: 20131002
  Receipt Date: 20131002
  Transmission Date: 20140711
  Serious: Yes (Other)
  Sender: FDA-Public Use
  Company Number: US-ASTRAZENECA-2013SE71963

PATIENT
  Age: 54 Year
  Sex: Male

DRUGS (3)
  1. BRILINTA [Suspect]
     Indication: PROPHYLAXIS
     Dosage: 180 MG LOAD 4 DAYS AGO
     Route: 048
  2. BRILINTA [Suspect]
     Indication: PROPHYLAXIS
     Route: 048
  3. ASPIRIN [Concomitant]

REACTIONS (2)
  - Thrombosis in device [Unknown]
  - Chest pain [Unknown]
